FAERS Safety Report 6493007-4 (Version None)
Quarter: 2009Q4

REPORT INFORMATION
  Report Type: 
  Country: None (occurrence: None)
  Receive Date: 20091214
  Receipt Date: 20091204
  Transmission Date: 20100525
  Serious: Yes (Other)
  Sender: FDA-Public Use
  Company Number: US-ABBOTT-09P-163-0612492-00

PATIENT
  Sex: Female
  Weight: 139.83 kg

DRUGS (7)
  1. LUPRON DEPOT [Suspect]
     Indication: UTERINE LEIOMYOMA
     Route: 030
     Dates: start: 20090327, end: 20090704
  2. LUPRON DEPOT [Suspect]
     Indication: MENORRHAGIA
     Route: 030
     Dates: start: 20091101
  3. DIOVAN [Concomitant]
     Indication: HYPERTENSION
     Route: 048
  4. VERAPAMIL [Concomitant]
     Indication: HYPERTENSION
     Route: 048
  5. TRIAMTERENE [Concomitant]
     Indication: DRUG USE FOR UNKNOWN INDICATION
     Route: 048
  6. TRAMADOL HCL [Concomitant]
     Indication: DRUG USE FOR UNKNOWN INDICATION
     Dosage: 1 - 325/37.5 MG TAB EVERY 12 HOURS
  7. VITAMIN B-12 [Concomitant]
     Indication: HAEMORRHAGIC ANAEMIA

REACTIONS (6)
  - ABDOMINAL PAIN [None]
  - AORTIC ANEURYSM [None]
  - GALLBLADDER DISORDER [None]
  - THROMBOSIS [None]
  - UTERINE HAEMORRHAGE [None]
  - VAGINAL HAEMORRHAGE [None]
